FAERS Safety Report 6231313-9 (Version None)
Quarter: 2009Q2

REPORT INFORMATION
  Report Type: 
  Country: None (occurrence: None)
  Receive Date: 20090616
  Receipt Date: 20090616
  Transmission Date: 20091009
  Serious: Yes (Other)
  Sender: FDA-Public Use
  Company Number: US-PFIZER INC-2009156287

PATIENT
  Sex: Female
  Weight: 68.027 kg

DRUGS (12)
  1. GEODON [Interacting]
     Indication: BIPOLAR DISORDER
     Dates: start: 20010101
  2. LITHIUM CARBONATE [Suspect]
     Indication: BIPOLAR DISORDER
  3. PERCOCET [Interacting]
     Indication: PAIN
     Dates: start: 20010101
  4. DEPAKOTE [Suspect]
     Indication: BIPOLAR DISORDER
  5. GABAPENTIN [Concomitant]
     Dosage: UNK
  6. COMBIPATCH [Concomitant]
     Dosage: UNK
  7. PRILOSEC [Concomitant]
     Dosage: UNK
  8. PROPRANOLOL [Concomitant]
     Dosage: UNK
  9. KLONOPIN [Concomitant]
     Dosage: UNK
  10. SEROQUEL [Concomitant]
     Dosage: UNK
  11. RISPERDAL [Concomitant]
     Dosage: UNK
  12. DILAUDID [Concomitant]
     Dosage: UNK

REACTIONS (13)
  - AKATHISIA [None]
  - DRUG INTERACTION [None]
  - FATIGUE [None]
  - FEELING ABNORMAL [None]
  - HYPERSOMNIA [None]
  - INSOMNIA [None]
  - MALAISE [None]
  - MANIA [None]
  - PAIN [None]
  - STRESS [None]
  - SUICIDAL IDEATION [None]
  - WEIGHT DECREASED [None]
  - WEIGHT INCREASED [None]
